FAERS Safety Report 8920179 (Version 6)
Quarter: 2013Q3

REPORT INFORMATION
  Report Type: Spontaneous
  Country: US (occurrence: US)
  Receive Date: 20121121
  Receipt Date: 20130808
  Transmission Date: 20140515
  Serious: Yes (Death, Hospitalization, Other)
  Sender: FDA-Public Use
  Company Number: US-B.I. PHARMACEUTICALS,INC./RIDGEFIELD-2012-BI-00484BP

PATIENT
  Age: 91 Year
  Sex: Female
  Weight: 63.5 kg

DRUGS (15)
  1. PRADAXA [Suspect]
     Indication: ANTICOAGULANT THERAPY
     Dosage: 300 MG
     Route: 048
     Dates: start: 20101119, end: 20101126
  2. PRADAXA [Suspect]
     Indication: ATRIAL FIBRILLATION
  3. NAMENDA [Concomitant]
     Dosage: 20 MG
     Route: 048
  4. VIT D [Concomitant]
     Dosage: 1000 U
     Route: 048
  5. ZETIA [Concomitant]
     Dosage: 10 MG
     Route: 048
  6. DIOVAN [Concomitant]
     Dosage: 160 MG
     Route: 048
  7. ARICEPT [Concomitant]
     Dosage: 23 MG
     Route: 048
  8. CRESTOR [Concomitant]
     Dosage: 10 MG
     Route: 048
  9. ACTONEL [Concomitant]
     Route: 048
  10. NASACORT [Concomitant]
     Indication: HYPERSENSITIVITY
     Route: 045
  11. CALCIUM CARBONATE WITH VIT D [Concomitant]
     Route: 048
  12. MULTAQ [Concomitant]
     Indication: ATRIAL FIBRILLATION
     Dosage: 800 MG
     Route: 048
     Dates: start: 20101119
  13. METOPROLOL SUCC ER [Concomitant]
     Dosage: 50 MG
     Route: 048
  14. NAMENDA [Concomitant]
     Dosage: 20 MG
     Route: 048
  15. HYDROCHLOROTHIAZIDE [Concomitant]
     Dosage: 20 MG
     Route: 048

REACTIONS (2)
  - Gastrointestinal haemorrhage [Fatal]
  - Coagulopathy [Unknown]
